FAERS Safety Report 5692796-6 (Version None)
Quarter: 2008Q2

REPORT INFORMATION
  Report Type: 
  Country: None (occurrence: None)
  Receive Date: 20080401
  Receipt Date: 20080325
  Transmission Date: 20081010
  Serious: Yes (Hospitalization)
  Sender: FDA-Public Use
  Company Number: 2008SP004878

PATIENT
  Age: 70 Year
  Sex: Male
  Weight: 82 kg

DRUGS (3)
  1. TEMOZOLOMIDE [Suspect]
     Indication: GLIOBLASTOMA MULTIFORME
     Dosage: 150 MG; QD; PO
     Route: 048
     Dates: start: 20080108, end: 20080225
  2. DEXACORT [Concomitant]
  3. LOSEC I.V. [Concomitant]

REACTIONS (3)
  - CHEST PAIN [None]
  - PULMONARY EMBOLISM [None]
  - PULMONARY INFARCTION [None]
